FAERS Safety Report 4263608-2 (Version None)
Quarter: 2004Q1

REPORT INFORMATION
  Report Type: 
  Country: None (occurrence: None)
  Receive Date: 20040102
  Receipt Date: 20031216
  Transmission Date: 20041129
  Serious: Yes (Hospitalization)
  Sender: FDA-Public Use
  Company Number: 20031200120

PATIENT
  Age: 47 Year
  Sex: Female

DRUGS (6)
  1. VENLAFAXINE HCL [Suspect]
     Indication: DEPRESSION
     Dosage: 300 MG DAILY PO
     Route: 048
  2. VALPROATE SODIUM [Suspect]
     Dosage: 900 MG DAILY PO
     Route: 048
  3. SEROQUEL [Suspect]
     Indication: DELUSION
     Dosage: 300 MG DAILY
  4. LORAZEPAM [Concomitant]
  5. TEMAZEPAM [Concomitant]
  6. JODID (POTASSIUM IODINE) [Concomitant]

REACTIONS (1)
  - PANCREATITIS [None]
